FAERS Safety Report 21824945 (Version 2)
Quarter: 2023Q1

REPORT INFORMATION
  Report Type: Spontaneous
  Country: US (occurrence: US)
  Receive Date: 20230105
  Receipt Date: 20230331
  Transmission Date: 20230418
  Serious: No
  Sender: FDA-Public Use
  Company Number: US-KARYOPHARM-2022KPT001469

PATIENT

DRUGS (11)
  1. XPOVIO [Suspect]
     Active Substance: SELINEXOR
     Indication: Brain neoplasm malignant
     Dosage: 80 MG, WEEKLY
     Route: 048
     Dates: start: 20221227, end: 202301
  2. XPOVIO [Suspect]
     Active Substance: SELINEXOR
     Dosage: 80 MG, WEEKLY
     Route: 048
     Dates: start: 202301
  3. BUDESONIDE [Concomitant]
     Active Substance: BUDESONIDE
  4. DEXMETHYLPHENIDATE [Concomitant]
     Active Substance: DEXMETHYLPHENIDATE
  5. FLUOXETINE [Concomitant]
     Active Substance: FLUOXETINE HYDROCHLORIDE
  6. LACOSAMIDE [Concomitant]
     Active Substance: LACOSAMIDE
  7. MEMANTINE [Concomitant]
     Active Substance: MEMANTINE
  8. OLANZAPINE [Concomitant]
     Active Substance: OLANZAPINE
     Indication: Nausea
  9. ONDANSETRON [Concomitant]
     Active Substance: ONDANSETRON
     Indication: Nausea
  10. PREDNISONE [Concomitant]
     Active Substance: PREDNISONE
  11. TRAMADOL [Concomitant]
     Active Substance: TRAMADOL

REACTIONS (4)
  - Blood test abnormal [Unknown]
  - Vomiting [Unknown]
  - Nausea [Unknown]
  - Off label use [Unknown]

NARRATIVE: CASE EVENT DATE: 20220101
